FAERS Safety Report 16714896 (Version 1)
Quarter: 2019Q3

REPORT INFORMATION
  Report Type: Spontaneous
  Country: US (occurrence: US)
  Receive Date: 20190819
  Receipt Date: 20190819
  Transmission Date: 20191005
  Serious: Yes (Hospitalization, Other)
  Sender: FDA-Public Use
  Company Number: US-MYLANLABS-2019M1076582

PATIENT
  Age: 71 Year
  Sex: Female

DRUGS (1)
  1. VANCOMYCIN [Suspect]
     Active Substance: VANCOMYCIN
     Indication: STAPHYLOCOCCAL INFECTION
     Dosage: ON DAYS 2-11; TARGET TROUGH DOSE LEVEL 15-20 MG/L
     Route: 065

REACTIONS (1)
  - Hypersensitivity vasculitis [Unknown]
